FAERS Safety Report 10084084 (Version 2)
Quarter: 2014Q2

REPORT INFORMATION
  Report Type: Report from Study
  Country: NL (occurrence: NL)
  Receive Date: 20140417
  Receipt Date: 20140425
  Transmission Date: 20141212
  Serious: Yes (Death, Life-Threatening)
  Sender: FDA-Public Use
  Company Number: PHHO2014NL005502

PATIENT
  Sex: 0

DRUGS (2)
  1. SANDIMMUN [Suspect]
     Indication: STEM CELL TRANSPLANT
     Dosage: 200 MG, UNK
     Route: 042
     Dates: start: 20120306, end: 20120314
  2. CELLCEPT [Concomitant]
     Indication: STEM CELL TRANSPLANT
     Dosage: 1 G, UNK
     Route: 042
     Dates: start: 20120308, end: 20120314

REACTIONS (1)
  - Venoocclusive disease [Fatal]
